FAERS Safety Report 6910717-2 (Version None)
Quarter: 2010Q3

REPORT INFORMATION
  Report Type: 
  Country: None (occurrence: None)
  Receive Date: 20100806
  Receipt Date: 20100730
  Transmission Date: 20110219
  Serious: Yes (Other)
  Sender: FDA-Public Use
  Company Number: US-ROCHE-718914

PATIENT
  Sex: Female
  Weight: 83.9 kg

DRUGS (5)
  1. BONIVA [Suspect]
     Indication: OSTEOPOROSIS
     Route: 048
     Dates: start: 20040101, end: 20080101
  2. BONIVA [Suspect]
     Route: 048
     Dates: start: 20080401
  3. VALTREX [Concomitant]
     Dates: end: 20080101
  4. METHOTREXATE [Concomitant]
     Dates: end: 20080101
  5. PREMPRO [Concomitant]
     Dates: end: 20080101

REACTIONS (1)
  - ACUTE MYELOID LEUKAEMIA [None]
